FAERS Safety Report 17659384 (Version 1)
Quarter: 2020Q2

REPORT INFORMATION
  Report Type: Spontaneous
  Country: DE (occurrence: DE)
  Receive Date: 20200413
  Receipt Date: 20200413
  Transmission Date: 20200713
  Serious: Yes (Hospitalization)
  Sender: FDA-Public Use
  Company Number: DE-TEVA-2020-DE-1222715

PATIENT
  Age: 51 Year
  Sex: Male

DRUGS (4)
  1. CARBOPLATIN. [Suspect]
     Active Substance: CARBOPLATIN
     Dosage: 750 MG
     Dates: end: 20191205
  2. PEMETREXED. [Suspect]
     Active Substance: PEMETREXED
     Dosage: 1000 MG,
     Dates: end: 20191205
  3. PEMBROLIZUMAB. [Suspect]
     Active Substance: PEMBROLIZUMAB
     Dosage: 200 MG,
     Dates: end: 20191205
  4. METAMIZOL [Concomitant]
     Active Substance: METAMIZOLE SODIUM

REACTIONS (2)
  - Tachycardia [Unknown]
  - Dyspnoea [Unknown]
